FAERS Safety Report 15434463 (Version 1)
Quarter: 2018Q3

REPORT INFORMATION
  Report Type: Spontaneous
  Country: US (occurrence: US)
  Receive Date: 20180921
  Receipt Date: 20180921
  Transmission Date: 20181010
  Serious: No
  Sender: FDA-Public Use
  Company Number: None

PATIENT
  Age: 64 Year
  Sex: Female

DRUGS (1)
  1. CAPECITABINE TAB 500MG [Suspect]
     Active Substance: CAPECITABINE
     Route: 048
     Dates: start: 20180608

REACTIONS (5)
  - Blister [None]
  - Skin fissures [None]
  - Burning sensation [None]
  - Nail bed bleeding [None]
  - Dry skin [None]

NARRATIVE: CASE EVENT DATE: 20180920
